FAERS Safety Report 7659840-8 (Version None)
Quarter: 2011Q3

REPORT INFORMATION
  Report Type: 
  Country: None (occurrence: None)
  Receive Date: 20110805
  Receipt Date: 20110727
  Transmission Date: 20111222
  Serious: Yes (Hospitalization, Other)
  Sender: FDA-Public Use
  Company Number: JP-JNJFOC-20110706869

PATIENT
  Age: 28 Year
  Sex: Male
  Weight: 56 kg

DRUGS (2)
  1. REMICADE [Suspect]
     Indication: CROHN'S DISEASE
     Route: 042
     Dates: start: 20030801
  2. REMICADE [Suspect]
     Route: 042
     Dates: start: 20100730

REACTIONS (4)
  - PYREXIA [None]
  - RASH [None]
  - LIVER DISORDER [None]
  - TYPE IV HYPERSENSITIVITY REACTION [None]
